FAERS Safety Report 25824413 (Version 1)
Quarter: 2025Q3

REPORT INFORMATION
  Report Type: Spontaneous
  Country: US (occurrence: US)
  Receive Date: 20250919
  Receipt Date: 20250919
  Transmission Date: 20251020
  Serious: No
  Sender: SANOFI AVENTIS
  Company Number: US-SA-2025SA281288

PATIENT
  Age: 72 Year
  Sex: Male
  Weight: 162 kg

DRUGS (1)
  1. REZUROCK [Suspect]
     Active Substance: BELUMOSUDIL
     Indication: Graft versus host disease
     Dosage: 200 MG, QD
     Dates: start: 20250829

REACTIONS (3)
  - Wound [Unknown]
  - Diarrhoea [Unknown]
  - Contusion [Unknown]

NARRATIVE: CASE EVENT DATE: 20250101
